FAERS Safety Report 4899272-9 (Version None)
Quarter: 2006Q1

REPORT INFORMATION
  Report Type: 
  Country: None (occurrence: None)
  Receive Date: 20060131
  Receipt Date: 20060119
  Transmission Date: 20060701
  Serious: Yes (Hospitalization, Other)
  Sender: FDA-Public Use
  Company Number: FRWYE313719JAN06

PATIENT
  Age: 39 Year
  Sex: Female

DRUGS (3)
  1. TAZOCILLINE (PIPERACILLIN/TAZOBACTAM, INJECTION) [Suspect]
     Dosage: 12 G TOTAL DAILY, INTRAVENOUS
     Route: 042
     Dates: start: 20051123, end: 20051101
  2. TAZOCILLINE (PIPERACILLIN/TAZOBACTAM, INJECTION) [Suspect]
     Dosage: 12 G TOTAL DAILY, INTRAVENOUS
     Route: 042
     Dates: start: 20051114, end: 20051122
  3. ROCEPHIN [Concomitant]

REACTIONS (3)
  - RASH PAPULAR [None]
  - RASH PRURITIC [None]
  - TOXIC SKIN ERUPTION [None]
